FAERS Safety Report 8855297 (Version 1)
Quarter: 2012Q4

REPORT INFORMATION
  Report Type: 
  Country: US (occurrence: US)
  Receive Date: 20121023
  Receipt Date: 20121023
  Transmission Date: 20130627
  Serious: No
  Sender: FDA-Public Use
  Company Number: US-AMGEN-USASP2012059727

PATIENT
  Sex: Female

DRUGS (3)
  1. ENBREL [Suspect]
     Indication: RHEUMATOID ARTHRITIS
     Dosage: 50 UNK
     Route: 058
     Dates: start: 19990201, end: 201104
  2. CIMZIA [Concomitant]
     Dosage: UNK
  3. ORENCIA [Concomitant]
     Dosage: UNK

REACTIONS (1)
  - Rheumatoid arthritis [Unknown]
